FAERS Safety Report 6621640-5 (Version None)
Quarter: 2010Q1

REPORT INFORMATION
  Report Type: 
  Country: None (occurrence: None)
  Receive Date: 20100309
  Receipt Date: 20100222
  Transmission Date: 20100710
  Serious: Yes (Disabling)
  Sender: FDA-Public Use
  Company Number: DK-DENTSPLY-2010-0026-EUR

PATIENT
  Sex: Female

DRUGS (1)
  1. CITANEST [Suspect]
     Route: 053
     Dates: start: 20060831, end: 20060831

REACTIONS (4)
  - DYSGEUSIA [None]
  - HYPOAESTHESIA ORAL [None]
  - NERVE INJURY [None]
  - PARAESTHESIA ORAL [None]
